FAERS Safety Report 19266579 (Version 3)
Quarter: 2021Q2

REPORT INFORMATION
  Report Type: Spontaneous
  Country: US (occurrence: US)
  Receive Date: 20210517
  Receipt Date: 20210618
  Transmission Date: 20210717
  Serious: No
  Sender: FDA-Public Use
  Company Number: US-JNJFOC-20210514529

PATIENT
  Age: 54 Year
  Sex: Female

DRUGS (1)
  1. TREMFYA [Suspect]
     Active Substance: GUSELKUMAB
     Indication: PSORIASIS
     Dosage: MAINTENANCE DOSE WILL BE EVERY 8 WEEKS.
     Route: 058
     Dates: start: 20210401

REACTIONS (3)
  - Drug delivery system malfunction [Unknown]
  - Product dose omission issue [Unknown]
  - Device occlusion [Unknown]

NARRATIVE: CASE EVENT DATE: 20210501
